FAERS Safety Report 4705216-2 (Version None)
Quarter: 2005Q2

REPORT INFORMATION
  Report Type: 
  Country: None (occurrence: None)
  Receive Date: 20050628
  Receipt Date: 20050624
  Transmission Date: 20051028
  Serious: Yes (Hospitalization)
  Sender: FDA-Public Use
  Company Number: FRWYE770324JUN05

PATIENT
  Age: 16 Year
  Sex: Female

DRUGS (3)
  1. TAZOCILLINE [Suspect]
     Dosage: INTRAVENOUS
     Route: 042
     Dates: start: 20050402, end: 20050413
  2. METHOTREXATE [Suspect]
     Indication: ACUTE LYMPHOCYTIC LEUKAEMIA
     Dosage: 5 G 1X PER 1 CYC INTRAVENOUS
     Route: 042
     Dates: start: 20050222, end: 20050326
  3. SURGESTONE           (PROMEGESTONE, , 0) [Suspect]
     Dosage: 0.5 MG 1X PER 1 DAY ORAL
     Route: 048
     Dates: start: 20050213, end: 20050415

REACTIONS (8)
  - CHOLESTASIS [None]
  - CYTOLYTIC HEPATITIS [None]
  - HEPATIC FIBROSIS [None]
  - HEPATIC NECROSIS [None]
  - HEPATIC STEATOSIS [None]
  - INSULIN RESISTANT DIABETES [None]
  - PANCREATITIS [None]
  - POLYMERASE CHAIN REACTION [None]
